FAERS Safety Report 5504033-3 (Version None)
Quarter: 2007Q4

REPORT INFORMATION
  Report Type: 
  Country: None (occurrence: None)
  Receive Date: 20071030
  Receipt Date: 20071018
  Transmission Date: 20080405
  Serious: Yes (Death)
  Sender: FDA-Public Use
  Company Number: S07-USA-05552-01

PATIENT
  Age: 68 Year
  Sex: Female

DRUGS (3)
  1. LEXAPRO [Suspect]
     Indication: DEPRESSION
     Dosage: 10 MG BID PO
     Route: 048
     Dates: start: 20070701, end: 20070101
  2. FENTANYL [Concomitant]
  3. HYDROCODONE BITARTRATE [Concomitant]

REACTIONS (2)
  - ARRHYTHMIA [None]
  - DRUG LEVEL ABOVE THERAPEUTIC [None]
